FAERS Safety Report 8176815-3 (Version None)
Quarter: 2012Q1

REPORT INFORMATION
  Report Type: 
  Country: None (occurrence: None)
  Receive Date: 20120301
  Receipt Date: 20120223
  Transmission Date: 20120608
  Serious: Yes (Hospitalization)
  Sender: FDA-Public Use
  Company Number: NL-MEDIMMUNE-MEDI-0014748

PATIENT
  Sex: Female
  Weight: 5.3 kg

DRUGS (2)
  1. SYNAGIS [Suspect]
     Route: 030
     Dates: start: 20120124, end: 20120124
  2. SYNAGIS [Suspect]
     Indication: PREMATURE BABY
     Route: 030
     Dates: start: 20111104, end: 20111227

REACTIONS (2)
  - RESPIRATORY TRACT INFECTION [None]
  - RESPIRATORY SYNCYTIAL VIRUS TEST POSITIVE [None]
